FAERS Safety Report 5766055-7 (Version None)
Quarter: 2008Q2

REPORT INFORMATION
  Report Type: 
  Country: None (occurrence: None)
  Receive Date: 20080611
  Receipt Date: 20080529
  Transmission Date: 20081010
  Serious: No
  Sender: FDA-Public Use
  Company Number: CA-AVENTIS-200814880GDDC

PATIENT
  Age: 66 Year
  Sex: Male

DRUGS (2)
  1. LANTUS [Suspect]
     Route: 058
     Dates: start: 20080301
  2. AUTOPEN INSULIN INJECTION PEN [Suspect]

REACTIONS (1)
  - WEIGHT INCREASED [None]
